FAERS Safety Report 12556266 (Version 3)
Quarter: 2016Q3

REPORT INFORMATION
  Report Type: Report from Study
  Country: KR (occurrence: KR)
  Receive Date: 20160714
  Receipt Date: 20160912
  Transmission Date: 20161109
  Serious: Yes (Hospitalization, Other)
  Sender: FDA-Public Use
  Company Number: KR-TEVA-662358ISR

PATIENT
  Age: 77 Year
  Sex: Female
  Weight: 36 kg

DRUGS (43)
  1. SINEMET CR TAB [Concomitant]
     Indication: PARKINSON^S DISEASE
     Route: 048
     Dates: start: 20150106, end: 20160211
  2. LIVALO TAB 2MG [Concomitant]
     Dosage: PO,1T/QD
     Route: 048
     Dates: start: 20160207, end: 20160212
  3. FUROSEMIDE. [Concomitant]
     Active Substance: FUROSEMIDE
     Dosage: IV,1AMP/QD
     Route: 042
     Dates: start: 20160207, end: 20160207
  4. PROPACETAMOL HYDROCHLORIDE [Concomitant]
     Active Substance: PROPACETAMOL HYDROCHLORIDE
     Dosage: IV,2V/QD
     Route: 042
     Dates: start: 20160207, end: 20160207
  5. ASPARTIC ACID [Concomitant]
     Active Substance: ASPARTIC ACID
     Dosage: IV,1BTL/QD
     Dates: start: 20160207, end: 20160207
  6. RAMOSETRON HYDROCHLORIDE [Concomitant]
     Active Substance: RAMOSETRON HYDROCHLORIDE
     Dosage: PO/1C/QID
     Route: 048
     Dates: start: 20160207, end: 20160211
  7. RAMOSETRON HYDROCHLORIDE [Concomitant]
     Active Substance: RAMOSETRON HYDROCHLORIDE
     Dosage: IV/0.4MG/ONCE
     Route: 042
     Dates: start: 20160207, end: 20160207
  8. PYRIDOSTIGMINE BROMIDE. [Concomitant]
     Active Substance: PYRIDOSTIGMINE BROMIDE
     Dosage: PATCH/1PAT/ONCE
     Dates: start: 20160207, end: 20160207
  9. STALEVO FILM COATED TAB 200/50/200MG [Concomitant]
     Route: 048
     Dates: start: 20160208, end: 20160210
  10. CONIEL TAB 4MG [Concomitant]
     Dosage: PO,1T/QD
     Route: 048
     Dates: start: 20160207, end: 20160207
  11. PENTAHYDRATE, CHROMIC CHLORIDE HYDRATE [Concomitant]
     Dosage: IV,1V/QD
     Route: 042
     Dates: start: 20160207, end: 20160209
  12. PROPOFOL. [Concomitant]
     Active Substance: PROPOFOL
     Dosage: IV/2A/ONCE
     Route: 042
     Dates: start: 20160207, end: 20160207
  13. STALEVO FILM COATED TAB 200/50/200MG [Concomitant]
     Dosage: PO/2T/QID
     Route: 048
     Dates: start: 20160207, end: 20160211
  14. ASPIRIN PROTECT TAB 100MG [Concomitant]
     Dosage: PO,1T,QD
     Route: 048
     Dates: start: 20160207, end: 20160212
  15. FENTANYL. [Concomitant]
     Active Substance: FENTANYL
     Route: 042
     Dates: start: 20160207
  16. ENOXAPARIN SODIUM. [Concomitant]
     Active Substance: ENOXAPARIN SODIUM
     Dosage: SC,2SRG/BID
     Route: 058
     Dates: start: 20160207, end: 20160211
  17. GLYCOPYRROLATE. [Concomitant]
     Active Substance: GLYCOPYRROLATE
     Dosage: IM,0.2MG/ONCE
     Route: 030
     Dates: start: 20160207, end: 20160208
  18. CHOLECALCIFEROL [Concomitant]
     Active Substance: CHOLECALCIFEROL
     Dosage: IV/2A/ONCE
     Route: 042
     Dates: start: 20160207, end: 20160207
  19. AZILECT [Suspect]
     Active Substance: RASAGILINE MESYLATE
     Indication: PARKINSON^S DISEASE
     Dosage: 1 MILLIGRAM DAILY;
     Route: 048
     Dates: start: 20150901, end: 20160212
  20. STALEVO FILM COATED TAB 200/50/200MG [Concomitant]
     Indication: PARKINSON^S DISEASE
     Route: 048
     Dates: start: 20140724, end: 20160205
  21. LEXAPRO TAB 20MG [Concomitant]
     Dosage: PO,1T/QD
     Route: 048
     Dates: start: 20160207, end: 20160210
  22. LIVALO TAB 2MG [Concomitant]
     Indication: ANGINA PECTORIS
     Route: 048
     Dates: start: 20070312, end: 20160205
  23. CONIEL TAB 4MG [Concomitant]
     Dosage: PO,2T/QD
     Route: 048
     Dates: start: 20160207, end: 20160211
  24. CEFAZEDONE SODIUM [Concomitant]
     Active Substance: CEFAZEDONE
     Dosage: IV,1A/TID
     Route: 042
     Dates: start: 20160207, end: 20160209
  25. ESOMEPRAZOLE SODIUM. [Concomitant]
     Active Substance: ESOMEPRAZOLE SODIUM
     Dosage: IV,1A/ONCE
     Route: 042
     Dates: start: 20160207, end: 20160207
  26. PANCREASE MT [Concomitant]
     Active Substance: PANCRELIPASE
     Dosage: IV/2A/ONCE
     Route: 042
     Dates: start: 20160207, end: 20160207
  27. MOTILIUM M TAB 10MG [Concomitant]
     Indication: PROPHYLAXIS
     Route: 048
     Dates: start: 20131105, end: 20160128
  28. ASPIRIN PROTECT TAB 100MG [Concomitant]
     Indication: ANGINA PECTORIS
     Route: 048
     Dates: start: 20070224, end: 20160205
  29. FENTANYL. [Concomitant]
     Active Substance: FENTANYL
     Route: 042
     Dates: start: 20160207
  30. MANGANESE SULFATE MONOHYDRATE, CUPRIC SULFATE [Concomitant]
     Dosage: IV,2V/QD
     Route: 042
     Dates: start: 20160207, end: 20160209
  31. GLUTATHIONE(REDUCED) [Concomitant]
     Dosage: PO/1C/QD
     Route: 048
     Dates: start: 20160207, end: 20160210
  32. PORTALAC POWDER [Concomitant]
     Indication: PROPHYLAXIS
     Route: 048
     Dates: start: 20140515
  33. LEXAPRO TAB 20MG [Concomitant]
     Indication: PROPHYLAXIS
     Route: 048
     Dates: start: 20140619, end: 20160205
  34. FENTANYL. [Concomitant]
     Active Substance: FENTANYL
     Route: 042
     Dates: start: 20160207, end: 20160207
  35. LACTITOL MONOHYDRATE [Concomitant]
     Active Substance: LACTITOL MONOHYDRATE
     Dosage: PO,1PK/QD
     Route: 048
     Dates: start: 20140515, end: 20160205
  36. AMINO ACETIC ACID, L-THREONINE, N-ACETYL-L [Concomitant]
     Dosage: IV,1BTL/QD
     Route: 042
     Dates: start: 20160207, end: 20160208
  37. ROCURONIUM BROMIDE. [Concomitant]
     Active Substance: ROCURONIUM BROMIDE
     Dosage: IV/1V/ONCE
     Route: 042
     Dates: start: 20160207, end: 20160207
  38. EXELON CAP 3MG [Concomitant]
     Indication: PROPHYLAXIS
     Route: 048
     Dates: start: 20141111, end: 20160206
  39. CONIEL TAB 4MG [Concomitant]
     Indication: ANGINA PECTORIS
     Route: 048
     Dates: start: 20100111
  40. PETHIDINE [Concomitant]
     Active Substance: MEPERIDINE
     Route: 042
     Dates: start: 20160206, end: 20160207
  41. SELENIOUS ACID, ZINC SULFATE HEPTAHYDRATE, [Concomitant]
     Dosage: IV,1A/QD
     Route: 042
     Dates: start: 20160207, end: 20160209
  42. CELECOXIB. [Concomitant]
     Active Substance: CELECOXIB
     Dosage: IV/70MG/ONCE
     Route: 042
     Dates: start: 20160207
  43. GLYCOPYRROLATE. [Concomitant]
     Active Substance: GLYCOPYRROLATE
     Dosage: IV/1V/ONCE
     Route: 042
     Dates: start: 20160207, end: 20160207

REACTIONS (15)
  - Vocal cord paralysis [Recovered/Resolved]
  - Oesophagitis [Recovering/Resolving]
  - Hypoproteinaemia [Recovered/Resolved]
  - Aspartate aminotransferase increased [Recovered/Resolved]
  - Osteoporosis [Recovering/Resolving]
  - Acute kidney injury [Recovered/Resolved]
  - Delirium [Recovered/Resolved]
  - Pyrexia [Recovered/Resolved]
  - Alanine aminotransferase increased [Recovered/Resolved]
  - Oliguria [Recovered/Resolved]
  - Electrolyte imbalance [Recovered/Resolved]
  - Hypotension [Recovered/Resolved]
  - Hypertension [Recovered/Resolved]
  - Femur fracture [Recovered/Resolved]
  - Hyperthermia malignant [Recovered/Resolved]

NARRATIVE: CASE EVENT DATE: 20160206
